FAERS Safety Report 24370811 (Version 1)
Quarter: 2024Q3

REPORT INFORMATION
  Report Type: Report from Study
  Country: IN (occurrence: IN)
  Receive Date: 20240927
  Receipt Date: 20240927
  Transmission Date: 20241016
  Serious: Yes (Death, Hospitalization, Other)
  Sender: CIPLA
  Company Number: IN-CIPLA LTD.-2024IN10432

PATIENT

DRUGS (6)
  1. METOPROLOL SUCCINATE [Suspect]
     Active Substance: METOPROLOL SUCCINATE
     Indication: Product used for unknown indication
     Dosage: UNK (DOSE USED-1, FREQUENCY-1 (UNSPECIFIED UNITS), STRENGTH: 50 UNSPECIFIED UNITS)
     Route: 048
  2. DEPLATT-A [Concomitant]
     Indication: Product used for unknown indication
     Dosage: UNK, STRENGTH: 75 UNSPECIFIED UNITS
     Route: 065
  3. AVAS [Concomitant]
     Indication: Product used for unknown indication
     Dosage: UNK, STRENGTH: 40 UNSPECIFIED UNITS
     Route: 065
  4. RAM [Concomitant]
     Indication: Product used for unknown indication
     Dosage: UNK, STRENGTH: 2.5 UNSPECIFIED UNITS
     Route: 065
  5. ANGIPLAT [Concomitant]
     Indication: Product used for unknown indication
     Dosage: UNK, STRENGTH: 2.5 UNSPECIFIED UNITS
     Route: 065
  6. D RISE [Concomitant]
     Indication: Product used for unknown indication
     Dosage: UNK, 60K
     Route: 065

REACTIONS (1)
  - Myocardial infarction [Fatal]

NARRATIVE: CASE EVENT DATE: 20240829
